FAERS Safety Report 9596517 (Version 4)
Quarter: 2013Q4

REPORT INFORMATION
  Report Type: Report from Study
  Country: DE (occurrence: DE)
  Receive Date: 20131004
  Receipt Date: 20131209
  Transmission Date: 20140711
  Serious: Yes (Death, Hospitalization)
  Sender: FDA-Public Use
  Company Number: DE-BAYER-2011-065542

PATIENT
  Age: 78 Year
  Sex: Male
  Weight: 98 kg

DRUGS (10)
  1. NEXAVAR [Suspect]
     Indication: HEPATOCELLULAR CARCINOMA
     Dosage: 400 MG, BID
     Dates: start: 20110427, end: 20110511
  2. NEXAVAR [Suspect]
     Indication: HEPATOCELLULAR CARCINOMA
     Dosage: 400 MG, QD
     Route: 048
     Dates: start: 20110525, end: 20110704
  3. MONOCLAIR [Concomitant]
     Indication: CORONARY ARTERY DISEASE
     Dosage: DAILY DOSE 60 MG
  4. VESDIL 5 PLUS [Concomitant]
     Indication: HYPERTENSION
     Dosage: DAILY DOSE 5 MG
  5. SIMVASTIN [Concomitant]
     Indication: HYPERCHOLESTEROLAEMIA
     Dosage: DAILY DOSE 20 MG
  6. BISO LICH [Concomitant]
     Dosage: DAILY DOSE 10 MG
  7. HCT [Concomitant]
     Indication: CARDIOVASCULAR DISORDER
     Dosage: DAILY DOSE 25 MG
  8. DUSODRIL - SLOW RELEASE [Concomitant]
  9. RANITIDINE [Concomitant]
     Indication: PROPHYLAXIS
     Dosage: DAILY DOSE 300 MG
  10. ASS [Concomitant]
     Indication: CORONARY ARTERY DISEASE
     Dosage: DAILY DOSE 100 MG

REACTIONS (3)
  - Hepatocellular carcinoma [Fatal]
  - Cholestasis [Not Recovered/Not Resolved]
  - Hepatic function abnormal [Not Recovered/Not Resolved]
